FAERS Safety Report 4848782-9 (Version None)
Quarter: 2005Q4

REPORT INFORMATION
  Report Type: 
  Country: None (occurrence: None)
  Receive Date: 20051208
  Receipt Date: 20051128
  Transmission Date: 20060501
  Serious: Yes (Other)
  Sender: FDA-Public Use
  Company Number: US-NOVOPROD-248896

PATIENT
  Age: 71 Year
  Sex: Male

DRUGS (1)
  1. NOVOSEVEN [Suspect]
     Indication: FACTOR VII DEFICIENCY
     Dosage: UNKNOWN
     Route: 042
     Dates: start: 20040101, end: 20040101

REACTIONS (3)
  - BLINDNESS [None]
  - RENAL VEIN THROMBOSIS [None]
  - THROMBOTIC STROKE [None]
